FAERS Safety Report 14216464 (Version 1)
Quarter: 2017Q4

REPORT INFORMATION
  Report Type: Spontaneous
  Country: CZ (occurrence: CZ)
  Receive Date: 20171122
  Receipt Date: 20171122
  Transmission Date: 20180321
  Serious: Yes (Life-Threatening, Hospitalization, Other)
  Sender: FDA-Public Use
  Company Number: CZ-ALLERGAN-1766114US

PATIENT
  Age: 31 Year
  Sex: Female

DRUGS (1)
  1. LEVONORGESTREL - BP [Suspect]
     Active Substance: LEVONORGESTREL
     Indication: CHEMICAL CONTRACEPTION
     Dosage: 52 MG
     Route: 015
     Dates: start: 20170328, end: 20170907

REACTIONS (1)
  - Adenocarcinoma of the cervix [Recovered/Resolved]

NARRATIVE: CASE EVENT DATE: 201708
